FAERS Safety Report 5566841-2 (Version None)
Quarter: 2007Q4

REPORT INFORMATION
  Report Type: 
  Country: None (occurrence: None)
  Receive Date: 20071219
  Receipt Date: 20071207
  Transmission Date: 20080405
  Serious: Yes (Life-Threatening, Hospitalization)
  Sender: FDA-Public Use
  Company Number: FR-GILEAD-2007-0014418

PATIENT
  Sex: Male
  Weight: 62 kg

DRUGS (7)
  1. TRUVADA [Suspect]
     Indication: HIV INFECTION
     Route: 048
     Dates: start: 20071030
  2. SUSTIVA [Suspect]
     Indication: HIV INFECTION
     Route: 048
     Dates: start: 20071030
  3. BACTRIM [Suspect]
     Indication: ANTIFUNGAL PROPHYLAXIS
     Route: 048
     Dates: start: 20070928, end: 20071114
  4. RIFADIN [Suspect]
     Indication: TUBERCULOSIS
     Route: 048
     Dates: start: 20070928
  5. RIMIFON [Concomitant]
     Indication: TUBERCULOSIS
     Dates: start: 20070928
  6. ETHAMBUTOL HYDROCHLORIDE [Concomitant]
     Indication: TUBERCULOSIS
     Route: 048
     Dates: start: 20070928
  7. PIRILENE [Concomitant]
     Indication: TUBERCULOSIS
     Route: 048
     Dates: start: 20071030

REACTIONS (5)
  - COR PULMONALE ACUTE [None]
  - DRUG HYPERSENSITIVITY [None]
  - PHLEBITIS [None]
  - PULMONARY EMBOLISM [None]
  - PYREXIA [None]
